FAERS Safety Report 5212077-4 (Version None)
Quarter: 2007Q1

REPORT INFORMATION
  Report Type: 
  Country: None (occurrence: None)
  Receive Date: 20070118
  Receipt Date: 20070112
  Transmission Date: 20070707
  Serious: Yes (Death, Hospitalization, Other)
  Sender: FDA-Public Use
  Company Number: FR-ELI_LILLY_AND_COMPANY-FR200701002308

PATIENT
  Age: 79 Year
  Sex: Male
  Weight: 83 kg

DRUGS (10)
  1. GEMZAR [Suspect]
     Indication: GALLBLADDER CANCER
     Dosage: 2000 MG, OTHER
     Route: 042
     Dates: start: 20061019
  2. PREVISCAN [Interacting]
     Dosage: 20 MG, DAILY (1/D)
     Route: 048
     Dates: start: 20061017, end: 20061021
  3. SECTRAL [Concomitant]
     Dosage: 200 MG, DAILY (1/D)
     Route: 048
  4. KARDEGIC                                /FRA/ [Concomitant]
     Dosage: 75 MG, DAILY (1/D)
     Route: 048
  5. ZESTRIL [Concomitant]
     Dosage: 5 MG, DAILY (1/D)
     Route: 048
  6. VASTEN [Concomitant]
     Dosage: 40 MG, DAILY (1/D)
     Route: 048
  7. ESOMEPRAZOLE MAGNESIUM [Concomitant]
     Dosage: 20 MG, DAILY (1/D)
     Route: 048
  8. ACETAMINOPHEN W/ PROPOXYPHENE HCL [Concomitant]
     Dosage: 6 D/F, DAILY (1/D)
     Route: 048
  9. DOLIPRANE [Concomitant]
     Dosage: UNK, AS NEEDED
     Route: 048
  10. AUGMENTIN                               /SCH/ [Concomitant]
     Route: 048
     Dates: start: 20061019, end: 20061026

REACTIONS (4)
  - DRUG INTERACTION [None]
  - INTERNATIONAL NORMALISED RATIO INCREASED [None]
  - PHLEBITIS [None]
  - PULMONARY EMBOLISM [None]
